FAERS Safety Report 20872874 (Version 1)
Quarter: 2022Q2

REPORT INFORMATION
  Report Type: Report from Study
  Country: US (occurrence: US)
  Receive Date: 20220525
  Receipt Date: 20220525
  Transmission Date: 20220720
  Serious: Yes (Other)
  Sender: FDA-Public Use
  Company Number: US-JNJFOC-20220537923

PATIENT
  Age: 39 Year
  Sex: Female

DRUGS (3)
  1. SPRAVATO [Suspect]
     Active Substance: ESKETAMINE
     Indication: Depression
     Dosage: 56 MG, 13 TOTAL DOSES
     Dates: start: 20211021, end: 20220112
  2. SPRAVATO [Suspect]
     Active Substance: ESKETAMINE
     Indication: Depression
     Dosage: 84 MG, 8 TOTAL DOSES
     Dates: start: 20220316, end: 20220503
  3. SPRAVATO [Suspect]
     Active Substance: ESKETAMINE
     Dosage: 84 MG, RECENT DOSE
     Dates: start: 20220517, end: 20220517

REACTIONS (1)
  - Hypertension [Recovered/Resolved]

NARRATIVE: CASE EVENT DATE: 20220517
